FAERS Safety Report 18882660 (Version 1)
Quarter: 2021Q1

REPORT INFORMATION
  Report Type: Spontaneous
  Country: US (occurrence: US)
  Receive Date: 20210212
  Receipt Date: 20210212
  Transmission Date: 20210420
  Serious: No
  Sender: FDA-Public Use
  Company Number: US-TEVA-2021-US-1877626

PATIENT
  Age: 53 Year
  Sex: Female

DRUGS (1)
  1. METOPROLOL SUCCINATE TEVA [Suspect]
     Active Substance: METOPROLOL SUCCINATE
     Indication: HYPERTENSION
     Dosage: FORM OF ADMIN: EXTENDED?RELEASE TABLET
     Dates: start: 2020

REACTIONS (3)
  - Oropharyngeal discomfort [Recovered/Resolved]
  - Blister [Unknown]
  - Food allergy [Recovered/Resolved]

NARRATIVE: CASE EVENT DATE: 2021
